FAERS Safety Report 6458830-0 (Version None)
Quarter: 2009Q4

REPORT INFORMATION
  Report Type: 
  Country: None (occurrence: None)
  Receive Date: 20091123
  Receipt Date: 20091109
  Transmission Date: 20100525
  Serious: Yes (Other)
  Sender: FDA-Public Use
  Company Number: CIP09003188

PATIENT
  Sex: Female

DRUGS (3)
  1. FURADANTINE      (NITROFURANTOIN MACROCRYSTALS) [Suspect]
     Dosage: ORAL
     Route: 048
     Dates: start: 20090826
  2. GENTAMICIN SULFATE [Suspect]
     Dosage: 80 MG DAILY,
     Dates: start: 20090821, end: 20090825
  3. HOMEOPATIC PREPARATION [Concomitant]

REACTIONS (7)
  - ABORTION INDUCED [None]
  - AMNIOTIC FLUID VOLUME DECREASED [None]
  - DRUG EXPOSURE DURING PREGNANCY [None]
  - GASTROINTESTINAL DISORDER [None]
  - HAEMATOMA [None]
  - OLIGOHYDRAMNIOS [None]
  - ULTRASOUND ANTENATAL SCREEN ABNORMAL [None]
